FAERS Safety Report 16667011 (Version 1)
Quarter: 2019Q3

REPORT INFORMATION
  Report Type: Spontaneous
  Country: FR (occurrence: FR)
  Receive Date: 20190805
  Receipt Date: 20190805
  Transmission Date: 20191004
  Serious: Yes (Death)
  Sender: FDA-Public Use
  Company Number: FR-TEVA-2019-FR-1087828

PATIENT
  Age: 51 Year
  Sex: Female

DRUGS (7)
  1. CYAMEMAZINE [Suspect]
     Active Substance: CYAMEMAZINE
     Route: 065
  2. MIRTAZAPINE. [Suspect]
     Active Substance: MIRTAZAPINE
     Route: 065
  3. QUETIAPINE. [Suspect]
     Active Substance: QUETIAPINE
     Route: 065
  4. OXYCODONE [Suspect]
     Active Substance: OXYCODONE
     Route: 065
  5. OXAZEPAM. [Suspect]
     Active Substance: OXAZEPAM
     Route: 065
  6. VORTIOXETINE (BROMHYDRATE DE) [Concomitant]
     Active Substance: VORTIOXETINE HYDROBROMIDE
  7. ZOPICLONE [Concomitant]
     Active Substance: ZOPICLONE

REACTIONS (1)
  - Drug abuse [Fatal]

NARRATIVE: CASE EVENT DATE: 2018
